FAERS Safety Report 4391629-8 (Version None)
Quarter: 2004Q3

REPORT INFORMATION
  Report Type: 
  Country: None (occurrence: None)
  Receive Date: 20040702
  Receipt Date: 20040330
  Transmission Date: 20050211
  Serious: Yes (Other)
  Sender: FDA-Public Use
  Company Number: 2004UW06361

PATIENT
  Age: 57 Year
  Sex: Female
  Weight: 81.6475 kg

DRUGS (7)
  1. CRESTOR [Suspect]
     Dosage: 10 MG QD PO
     Route: 048
  2. INDERAL [Concomitant]
  3. MONOPRIL [Concomitant]
  4. TAVIST [Concomitant]
  5. KLONOPIN [Concomitant]
  6. ELAVIL [Concomitant]
  7. ESTROGEN [Concomitant]

REACTIONS (3)
  - ABDOMINAL PAIN [None]
  - FAECES DISCOLOURED [None]
  - NAUSEA [None]
